FAERS Safety Report 5212004-X (Version None)
Quarter: 2007Q1

REPORT INFORMATION
  Report Type: 
  Country: None (occurrence: None)
  Receive Date: 20070118
  Receipt Date: 20070117
  Transmission Date: 20070707
  Serious: Yes (Life-Threatening, Hospitalization)
  Sender: FDA-Public Use
  Company Number: FR-GLAXOSMITHKLINE-B0454365A

PATIENT
  Age: 40 Year
  Sex: Male

DRUGS (1)
  1. AUGMENTIN '125' [Suspect]
     Indication: OTITIS MEDIA ACUTE
     Route: 048
     Dates: start: 20070104, end: 20070104

REACTIONS (7)
  - ANAPHYLACTIC SHOCK [None]
  - ANGIOEDEMA [None]
  - APHASIA [None]
  - HYPERHIDROSIS [None]
  - HYPOTENSION [None]
  - POOR PERIPHERAL CIRCULATION [None]
  - RASH ERYTHEMATOUS [None]
